FAERS Safety Report 8272148-5 (Version None)
Quarter: 2012Q2

REPORT INFORMATION
  Report Type: 
  Country: None (occurrence: None)
  Receive Date: 20120410
  Receipt Date: 20120319
  Transmission Date: 20120825
  Serious: No
  Sender: FDA-Public Use
  Company Number: US-ASTRAZENECA-2011SE78659

PATIENT
  Age: 51 Year
  Sex: Male

DRUGS (7)
  1. VANDETANIB [Suspect]
     Indication: THYROID CANCER
     Route: 048
  2. LEVOXYL [Concomitant]
  3. PROCHLORPERAZINE MALEATE [Concomitant]
  4. OXYCODONE HCL [Concomitant]
  5. VITAMIN D [Concomitant]
  6. ZANTAC 75 [Concomitant]
  7. ATIVAN [Concomitant]

REACTIONS (6)
  - FATIGUE [None]
  - DIZZINESS [None]
  - ARTHRALGIA [None]
  - NIGHT SWEATS [None]
  - DIARRHOEA [None]
  - DERMATITIS ACNEIFORM [None]
